FAERS Safety Report 7213773-X (Version None)
Quarter: 2011Q1

REPORT INFORMATION
  Report Type: 
  Country: None (occurrence: None)
  Receive Date: 20110106
  Receipt Date: 20101228
  Transmission Date: 20110831
  Serious: Yes (Death)
  Sender: FDA-Public Use
  Company Number: JP-ABBOTT-10P-087-0692417-00

PATIENT
  Age: 41 Year
  Sex: Female

DRUGS (8)
  1. HUMIRA [Suspect]
     Indication: MELAENA
  2. HUMIRA [Suspect]
     Indication: CHEMOTHERAPY
     Route: 058
     Dates: start: 20101126, end: 20101126
  3. HUMIRA [Suspect]
     Indication: MUCOUS MEMBRANE DISORDER
  4. CHEMOTHERAPY WITH DRUGS INCLUDING CYTARABINE [Concomitant]
     Indication: LEUKAEMIA
  5. PREDNISOLONE [Concomitant]
     Indication: PRODUCT USED FOR UNKNOWN INDICATION
  6. HUMIRA [Suspect]
     Indication: CROHN'S DISEASE
  7. ANTIBIOTICS-RESISTANT LACTIC ACID BACTERIAE [Concomitant]
     Indication: PRODUCT USED FOR UNKNOWN INDICATION
  8. MESALAZINE [Concomitant]
     Indication: PRODUCT USED FOR UNKNOWN INDICATION

REACTIONS (1)
  - SHOCK HAEMORRHAGIC [None]
